FAERS Safety Report 11822375 (Version 3)
Quarter: 2016Q3

REPORT INFORMATION
  Report Type: Spontaneous
  Country: US (occurrence: US)
  Receive Date: 20151210
  Receipt Date: 20160725
  Transmission Date: 20161109
  Serious: No
  Sender: FDA-Public Use
  Company Number: US-JNJFOC-20140716508

PATIENT
  Age: 73 Year
  Sex: Female
  Weight: 54 kg

DRUGS (13)
  1. IMBRUVICA [Suspect]
     Active Substance: IBRUTINIB
     Indication: CHRONIC LYMPHOCYTIC LEUKAEMIA
     Route: 065
  2. IMBRUVICA [Suspect]
     Active Substance: IBRUTINIB
     Indication: CHRONIC LYMPHOCYTIC LEUKAEMIA
     Route: 065
     Dates: start: 201405
  3. IMBRUVICA [Suspect]
     Active Substance: IBRUTINIB
     Indication: CHRONIC LYMPHOCYTIC LEUKAEMIA
     Route: 065
     Dates: start: 201407
  4. ACYCLOVIR. [Concomitant]
     Active Substance: ACYCLOVIR
  5. ALLOPURINOL. [Concomitant]
     Active Substance: ALLOPURINOL
  6. LEVOTHYROXINE. [Concomitant]
     Active Substance: LEVOTHYROXINE
  7. IMBRUVICA [Suspect]
     Active Substance: IBRUTINIB
     Indication: CHRONIC LYMPHOCYTIC LEUKAEMIA
     Route: 065
     Dates: start: 20140530
  8. CETIRIZINE [Concomitant]
     Active Substance: CETIRIZINE HYDROCHLORIDE
  9. MONTELUKAST [Concomitant]
     Active Substance: MONTELUKAST SODIUM
  10. CALCIUM [Concomitant]
     Active Substance: CALCIUM
  11. MUPIROCIN. [Concomitant]
     Active Substance: MUPIROCIN
  12. NASONEX [Concomitant]
     Active Substance: MOMETASONE FUROATE
  13. CLONAZEPAM. [Concomitant]
     Active Substance: CLONAZEPAM

REACTIONS (6)
  - Haematuria [Unknown]
  - Contusion [Not Recovered/Not Resolved]
  - Blood count abnormal [Unknown]
  - Soft tissue mass [Not Recovered/Not Resolved]
  - Cystitis [Not Recovered/Not Resolved]
  - Gout [Unknown]

NARRATIVE: CASE EVENT DATE: 201407
